FAERS Safety Report 25437070 (Version 1)
Quarter: 2025Q2

REPORT INFORMATION
  Report Type: Report from Study
  Country: KR (occurrence: KR)
  Receive Date: 20250615
  Receipt Date: 20250615
  Transmission Date: 20250717
  Serious: Yes (Hospitalization)
  Sender: ABBVIE
  Company Number: KR-ABBVIE-6322582

PATIENT
  Age: 55 Year
  Sex: Male
  Weight: 94 kg

DRUGS (11)
  1. SKYRIZI [Suspect]
     Active Substance: RISANKIZUMAB-RZAA
     Indication: Psoriasis
     Route: 058
     Dates: start: 20220617, end: 20220617
  2. SKYRIZI [Suspect]
     Active Substance: RISANKIZUMAB-RZAA
     Route: 058
     Dates: start: 20220325, end: 20220325
  3. SKYRIZI [Suspect]
     Active Substance: RISANKIZUMAB-RZAA
     Route: 058
     Dates: start: 20220914, end: 20220914
  4. SKYRIZI [Suspect]
     Active Substance: RISANKIZUMAB-RZAA
     Route: 058
     Dates: start: 20230306, end: 20230306
  5. SKYRIZI [Suspect]
     Active Substance: RISANKIZUMAB-RZAA
     Route: 058
     Dates: start: 20221207, end: 20221207
  6. SKYRIZI [Suspect]
     Active Substance: RISANKIZUMAB-RZAA
     Route: 058
     Dates: start: 20220225, end: 20220225
  7. Adipam [Concomitant]
     Indication: Prophylaxis
     Route: 048
     Dates: start: 20220617, end: 20220714
  8. PREDNISONE [Concomitant]
     Active Substance: PREDNISONE
     Indication: Psoriasis
     Dosage: SOLN
     Dates: start: 20220625
  9. PHENIRAMINE [Concomitant]
     Active Substance: PHENIRAMINE
     Indication: Prophylaxis
     Route: 048
     Dates: start: 20220617, end: 20220714
  10. DAIVOBET [Concomitant]
     Active Substance: BETAMETHASONE DIPROPIONATE\CALCIPOTRIENE
     Indication: Psoriasis
     Dates: start: 20220225
  11. RUPAFIN [Concomitant]
     Active Substance: RUPATADINE FUMARATE
     Indication: Prophylaxis
     Route: 048
     Dates: start: 20220617, end: 20220714

REACTIONS (1)
  - Carpal tunnel syndrome [Recovered/Resolved]

NARRATIVE: CASE EVENT DATE: 20220725
